FAERS Safety Report 25636981 (Version 1)
Quarter: 2025Q3

REPORT INFORMATION
  Report Type: Spontaneous
  Country: US (occurrence: US)
  Receive Date: 20250804
  Receipt Date: 20250804
  Transmission Date: 20251021
  Serious: No
  Sender: ALEXION PHARMACEUTICALS
  Company Number: US-PROCTER+GAMBLE-PH25010728

PATIENT
  Age: 65 Year
  Sex: Female

DRUGS (1)
  1. PRILOSEC OTC [Suspect]
     Active Substance: OMEPRAZOLE MAGNESIUM
     Indication: Gastrooesophageal reflux disease
     Dosage: 1 TABLET, 1 ONLY (ONLY TAKEN ONCE )
     Dates: start: 20250713, end: 20250713

REACTIONS (4)
  - Tongue discomfort [Recovered/Resolved]
  - Oesophageal pain [Recovered/Resolved]
  - Tongue blistering [Unknown]
  - Product use in unapproved indication [Unknown]

NARRATIVE: CASE EVENT DATE: 20250713
